FAERS Safety Report 7027622-6 (Version None)
Quarter: 2010Q4

REPORT INFORMATION
  Report Type: 
  Country: None (occurrence: None)
  Receive Date: 20101004
  Receipt Date: 20100921
  Transmission Date: 20110411
  Serious: Yes (Death)
  Sender: FDA-Public Use
  Company Number: KP-WATSON-2010-12947

PATIENT
  Age: 67 Year
  Sex: Female

DRUGS (4)
  1. ETOPOSIDE (WATSON LABORATORIES) [Suspect]
     Indication: LUNG NEOPLASM MALIGNANT
     Dosage: UNK
     Route: 042
  2. ETOPOSIDE (WATSON LABORATORIES) [Suspect]
     Indication: METASTASES TO LIVER
  3. CISPLATIN [Suspect]
     Indication: LUNG NEOPLASM MALIGNANT
     Dosage: UNK
  4. CISPLATIN [Suspect]
     Indication: METASTASES TO LIVER

REACTIONS (1)
  - AORTIC THROMBOSIS [None]
